FAERS Safety Report 5414608-8 (Version None)
Quarter: 2007Q3

REPORT INFORMATION
  Report Type: 
  Country: None (occurrence: None)
  Receive Date: 20070731
  Receipt Date: 20070529
  Transmission Date: 20080115
  Serious: No
  Sender: FDA-Public Use
  Company Number: 2006PV021837

PATIENT
  Age: 32 Year
  Sex: Female

DRUGS (1)
  1. EXENATIDE(EXENATIDE) PEN, DISPOSABLE [Suspect]
     Indication: DRUG USE FOR UNKNOWN INDICATION
     Dosage: 5 UG, SUBCUTANEOUS
     Route: 058
     Dates: start: 20060829, end: 20060921

REACTIONS (1)
  - DRUG EXPOSURE DURING PREGNANCY [None]
